FAERS Safety Report 25812616 (Version 1)
Quarter: 2025Q3

REPORT INFORMATION
  Report Type: Spontaneous
  Country: CN (occurrence: CN)
  Receive Date: 20250917
  Receipt Date: 20250917
  Transmission Date: 20251020
  Serious: Yes (Other)
  Sender: PFIZER
  Company Number: CN-PFIZER INC-PV202500111077

PATIENT
  Age: 13 Year
  Sex: Female
  Weight: 41 kg

DRUGS (7)
  1. METHYLPREDNISOLONE SODIUM SUCCINATE [Suspect]
     Active Substance: METHYLPREDNISOLONE SODIUM SUCCINATE
     Indication: Hepatic cirrhosis
     Dosage: 400 MG, 1X/DAY
     Route: 041
     Dates: start: 20250730, end: 20250730
  2. METHYLPREDNISOLONE SODIUM SUCCINATE [Suspect]
     Active Substance: METHYLPREDNISOLONE SODIUM SUCCINATE
     Indication: Liver transplant
  3. PROGRAF [Concomitant]
     Active Substance: TACROLIMUS
     Indication: Hepatic cirrhosis
     Dosage: 1 MG, 2X/DAY
     Route: 048
     Dates: start: 20250805, end: 20250806
  4. PROGRAF [Concomitant]
     Active Substance: TACROLIMUS
     Indication: Liver transplant
  5. MEROPENEM [Concomitant]
     Active Substance: MEROPENEM
     Indication: Anti-infective therapy
     Dates: start: 202508
  6. VANCOMYCIN [Concomitant]
     Active Substance: VANCOMYCIN
     Indication: Anti-infective therapy
     Dates: start: 202508
  7. OMEPRAZOLE [Concomitant]
     Active Substance: OMEPRAZOLE
     Dosage: 40 MG, 2X/DAY
     Route: 041
     Dates: start: 202508

REACTIONS (3)
  - Blood glucose increased [Recovering/Resolving]
  - Vertigo [Unknown]
  - Abdominal pain [Unknown]

NARRATIVE: CASE EVENT DATE: 20250804
